FAERS Safety Report 8462777-8 (Version None)
Quarter: 2012Q2

REPORT INFORMATION
  Report Type: 
  Country: None (occurrence: None)
  Receive Date: 20120625
  Receipt Date: 20120615
  Transmission Date: 20120825
  Serious: Yes (Hospitalization)
  Sender: FDA-Public Use
  Company Number: FR-SANOFI-AVENTIS-2012SA042873

PATIENT
  Age: 46 Year
  Sex: Female

DRUGS (5)
  1. PLAQUENIL [Suspect]
     Indication: ANKYLOSING SPONDYLITIS
     Route: 048
     Dates: end: 20120401
  2. PROPRANOLOL [Concomitant]
     Route: 048
  3. HUMEX [Concomitant]
     Dates: end: 20120413
  4. RABEPRAZOLE SODIUM [Concomitant]
  5. SULFASALAZINE [Concomitant]
     Route: 048
     Dates: end: 20120301

REACTIONS (3)
  - HYPERLIPASAEMIA [None]
  - ABDOMINAL PAIN UPPER [None]
  - PANCREATITIS ACUTE [None]
